FAERS Safety Report 4471771-3 (Version None)
Quarter: 2004Q4

REPORT INFORMATION
  Report Type: 
  Country: None (occurrence: None)
  Receive Date: 20041012
  Receipt Date: 20040927
  Transmission Date: 20050328
  Serious: Yes (Disabling)
  Sender: FDA-Public Use
  Company Number: FR-BRISTOL-MYERS SQUIBB COMPANY-12722773

PATIENT
  Age: 64 Year
  Sex: Female

DRUGS (2)
  1. VASTEN [Suspect]
     Indication: TYPE IIA HYPERLIPIDAEMIA
     Dosage: 20 MG FOR THREE MONTHS
     Route: 048
     Dates: end: 20030901
  2. CERIVASTATIN [Concomitant]
     Route: 048

REACTIONS (4)
  - EPICONDYLITIS [None]
  - MYALGIA [None]
  - PAIN [None]
  - TENDONITIS [None]
